FAERS Safety Report 5903043-1 (Version None)
Quarter: 2008Q3

REPORT INFORMATION
  Report Type: 
  Country: None (occurrence: None)
  Receive Date: 20080930
  Receipt Date: 20080925
  Transmission Date: 20090109
  Serious: Yes (Hospitalization)
  Sender: FDA-Public Use
  Company Number: DE-AVENTIS-200812486DE

PATIENT
  Age: 65 Year
  Sex: Female
  Weight: 86 kg

DRUGS (4)
  1. DOCETAXEL [Suspect]
     Indication: BREAST CANCER
     Route: 041
     Dates: start: 20080507, end: 20080820
  2. KEVATRIL [Concomitant]
     Dosage: DOSE: NOT REPORTED
     Dates: start: 20080820, end: 20080820
  3. FORTECORTIN                        /00016001/ [Concomitant]
     Dosage: DOSE: NOT REPORTED
     Dates: start: 20080820, end: 20080820
  4. ECURAL [Concomitant]
     Dosage: DOSE: NOT REPORTED
     Dates: start: 20080820, end: 20080820

REACTIONS (1)
  - IMPAIRED HEALING [None]
